FAERS Safety Report 8409053-7 (Version None)
Quarter: 2012Q2

REPORT INFORMATION
  Report Type: 
  Country: None (occurrence: None)
  Receive Date: 20120604
  Receipt Date: 20120216
  Transmission Date: 20120825
  Serious: No
  Sender: FDA-Public Use
  Company Number: US-NOVEN-12US004108

PATIENT
  Sex: Female
  Weight: 51.701 kg

DRUGS (9)
  1. CYMBALTA [Concomitant]
     Indication: ANXIETY
     Dosage: UNK
     Route: 048
  2. LORCET-HD [Concomitant]
     Indication: PAIN
     Dosage: UNK
     Route: 048
  3. VYVANSE [Concomitant]
     Indication: ATTENTION DEFICIT/HYPERACTIVITY DISORDER
     Dosage: UNK
     Route: 048
  4. LEXAPRO [Concomitant]
     Indication: ANXIETY
     Route: 048
  5. ABILIFY [Concomitant]
     Indication: ANXIETY
     Dosage: UNK
     Route: 048
  6. TOPAMAX [Concomitant]
     Indication: ANXIETY
     Dosage: UNK
     Route: 048
  7. XANAX [Concomitant]
     Indication: ANXIETY
     Dosage: UNK
     Route: 048
  8. DAYTRANA [Suspect]
     Indication: ATTENTION DEFICIT/HYPERACTIVITY DISORDER
     Dosage: 30 MG, QD
     Route: 062
  9. BYETTA [Concomitant]
     Indication: DIABETES MELLITUS
     Route: 048

REACTIONS (2)
  - APPLICATION SITE DISCOLOURATION [None]
  - OFF LABEL USE [None]
